FAERS Safety Report 6931415-5 (Version None)
Quarter: 2010Q3

REPORT INFORMATION
  Report Type: 
  Country: None (occurrence: None)
  Receive Date: 20100816
  Receipt Date: 20100805
  Transmission Date: 20110219
  Serious: Yes (Other)
  Sender: FDA-Public Use
  Company Number: 2010US002798

PATIENT
  Age: 56 Year
  Sex: Male
  Weight: 113 kg

DRUGS (3)
  1. LEXISCAN [Suspect]
     Indication: SCAN MYOCARDIAL PERFUSION
     Dosage: IV NOS
     Route: 042
     Dates: start: 20100714, end: 20100714
  2. LISINOPRIL [Concomitant]
  3. VICODIN [Concomitant]

REACTIONS (11)
  - BLOOD PRESSURE ABNORMAL [None]
  - CHEST DISCOMFORT [None]
  - DYSPNOEA [None]
  - ELECTROCARDIOGRAM ABNORMAL [None]
  - ELECTROCARDIOGRAM ST-T SEGMENT DEPRESSION [None]
  - FIBRIN D DIMER INCREASED [None]
  - FLUSHING [None]
  - HYPERHIDROSIS [None]
  - OXYGEN SATURATION DECREASED [None]
  - PALLOR [None]
  - VENTRICULAR EXTRASYSTOLES [None]
